FAERS Safety Report 17470421 (Version 1)
Quarter: 2020Q1

REPORT INFORMATION
  Report Type: Spontaneous
  Country: RU (occurrence: RU)
  Receive Date: 20200228
  Receipt Date: 20200228
  Transmission Date: 20200409
  Serious: Yes (Death, Other)
  Sender: FDA-Public Use
  Company Number: RU-ACCORD-173835

PATIENT
  Age: 47 Year
  Sex: Female

DRUGS (6)
  1. FLUOROURACIL. [Suspect]
     Active Substance: FLUOROURACIL
     Indication: BREAST CANCER METASTATIC
     Dosage: DAYS 1ST AND 8TH, 2-WK INTERVAL BETWEEN COURSES
     Route: 042
     Dates: start: 201804, end: 201808
  2. FLUOROURACIL. [Suspect]
     Active Substance: FLUOROURACIL
     Indication: BREAST CANCER METASTATIC
     Dosage: DAYS 1ST AND 8TH, 2-WK INTERVAL BETWEEN COURSES
     Route: 042
     Dates: start: 201804, end: 201808
  3. METHOTREXATE. [Suspect]
     Active Substance: METHOTREXATE
     Indication: BREAST CANCER METASTATIC
     Dosage: DAYS 1ST AND 8TH, 2-WK INTERVAL BETWEEN COURSES
     Route: 042
     Dates: start: 201804, end: 201808
  4. CYCLOPHOSPHAMIDE. [Suspect]
     Active Substance: CYCLOPHOSPHAMIDE
     Indication: METASTASES TO SKIN
     Dosage: DAYS 1ST AND 8TH, 2-WK INTERVAL BETWEEN COURSES
     Route: 042
     Dates: start: 201804, end: 201808
  5. METHOTREXATE. [Suspect]
     Active Substance: METHOTREXATE
     Indication: BREAST CANCER METASTATIC
     Dosage: DAYS 1ST AND 8TH, 2-WK INTERVAL BETWEEN COURSES
     Route: 042
     Dates: start: 201804, end: 201808
  6. CYCLOPHOSPHAMIDE/CYCLOPHOSPHAMIDE MONOHYDRATE [Suspect]
     Active Substance: CYCLOPHOSPHAMIDE
     Indication: LYMPHANGITIS
     Dosage: DAYS 1ST AND 8TH, 2-WK INTERVAL BETWEEN COURSES
     Route: 042
     Dates: start: 201804, end: 201808

REACTIONS (4)
  - Lymph node pain [Unknown]
  - Neutropenia [Unknown]
  - Leukopenia [Unknown]
  - Nausea [Unknown]

NARRATIVE: CASE EVENT DATE: 2018
